FAERS Safety Report 9638244 (Version 1)
Quarter: 2013Q4

REPORT INFORMATION
  Report Type: Report from Study
  Country: US (occurrence: US)
  Receive Date: 20131022
  Receipt Date: 20131022
  Transmission Date: 20140711
  Serious: Yes (Hospitalization)
  Sender: FDA-Public Use
  Company Number: US-ACTELION-A-NJ2013-89881

PATIENT
  Age: 74 Year
  Sex: Male

DRUGS (1)
  1. VELETRI [Suspect]
     Indication: COR PULMONALE CHRONIC
     Dosage: 19.7 NG/KG, UNK
     Route: 042
     Dates: start: 20130521

REACTIONS (1)
  - Toe amputation [Unknown]
